FAERS Safety Report 11338183 (Version 1)
Quarter: 2015Q3

REPORT INFORMATION
  Report Type: Spontaneous
  Country: US (occurrence: US)
  Receive Date: 20150803
  Receipt Date: 20150803
  Transmission Date: 20151125
  Serious: No
  Sender: FDA-Public Use
  Company Number: US-ELI_LILLY_AND_COMPANY-US201007004034

PATIENT
  Sex: Male

DRUGS (10)
  1. EFFEXOR XR [Concomitant]
     Active Substance: VENLAFAXINE HYDROCHLORIDE
     Dosage: 150 MG, UNK
  2. LUNESTA [Concomitant]
     Active Substance: ESZOPICLONE
  3. EFFEXOR XR [Concomitant]
     Active Substance: VENLAFAXINE HYDROCHLORIDE
     Indication: ANXIETY
     Dosage: 37.5 MG, UNK
  4. EFFEXOR XR [Concomitant]
     Active Substance: VENLAFAXINE HYDROCHLORIDE
     Dosage: 75 MG, UNK
  5. PRISTIQ EXTENDED RELEASE [Concomitant]
     Active Substance: DESVENLAFAXINE SUCCINATE
     Indication: ANXIETY
  6. SSRI [Concomitant]
     Active Substance: UNSPECIFIED INGREDIENT
  7. ZOLOFT [Concomitant]
     Active Substance: SERTRALINE HYDROCHLORIDE
     Indication: ANXIETY
  8. EFFEXOR XR [Concomitant]
     Active Substance: VENLAFAXINE HYDROCHLORIDE
     Dosage: 75 MG, UNK
  9. ZYPREXA [Suspect]
     Active Substance: OLANZAPINE
  10. KLONOPIN [Concomitant]
     Active Substance: CLONAZEPAM

REACTIONS (8)
  - Feeling abnormal [Unknown]
  - Restlessness [Unknown]
  - Fatigue [Unknown]
  - Akathisia [Unknown]
  - Insomnia [Unknown]
  - Anxiety [Unknown]
  - Sleep apnoea syndrome [Unknown]
  - Limb discomfort [Unknown]
